FAERS Safety Report 19260655 (Version 4)
Quarter: 2021Q3

REPORT INFORMATION
  Report Type: Report from Study
  Country: None (occurrence: US)
  Receive Date: 20210514
  Receipt Date: 20210902
  Transmission Date: 20211014
  Serious: Yes (Hospitalization)
  Sender: FDA-Public Use
  Company Number: US-ABBVIE-21P-163-3897897-00

PATIENT
  Age: 18 Year
  Sex: Female
  Weight: 55.1 kg

DRUGS (17)
  1. INSULIN [Concomitant]
     Active Substance: INSULIN NOS
     Indication: DIABETES MELLITUS
     Dosage: 100 UNITS/ML
     Route: 058
     Dates: start: 20210303
  2. DEXTROSE. [Concomitant]
     Active Substance: DEXTROSE
     Indication: PROPHYLAXIS
     Route: 042
     Dates: start: 20210408, end: 20210416
  3. PREDNISONE. [Suspect]
     Active Substance: PREDNISONE
     Indication: RECURRENT CANCER
     Route: 048
     Dates: start: 20210411
  4. PREDNISONE. [Suspect]
     Active Substance: PREDNISONE
     Indication: RECURRENT CANCER
  5. CRESEMBA [Concomitant]
     Active Substance: ISAVUCONAZONIUM SULFATE
     Indication: INFECTION PROPHYLAXIS
     Route: 048
     Dates: start: 20210324
  6. ENOXAPARIN SODIUM. [Concomitant]
     Active Substance: ENOXAPARIN SODIUM
     Indication: DEEP VEIN THROMBOSIS
     Route: 058
     Dates: start: 20210310
  7. VENETOCLAX. [Suspect]
     Active Substance: VENETOCLAX
     Indication: RECURRENT CANCER
     Route: 048
     Dates: start: 20210408, end: 20210408
  8. VINCRISTINE [Suspect]
     Active Substance: VINCRISTINE
     Indication: RECURRENT CANCER
     Route: 042
     Dates: start: 20210411
  9. VENETOCLAX. [Suspect]
     Active Substance: VENETOCLAX
     Route: 048
     Dates: start: 20210616, end: 20210706
  10. VENETOCLAX. [Suspect]
     Active Substance: VENETOCLAX
     Indication: RECURRENT CANCER
     Route: 048
     Dates: start: 20210409, end: 20210409
  11. VENETOCLAX. [Suspect]
     Active Substance: VENETOCLAX
     Route: 048
     Dates: start: 20210410, end: 20210504
  12. PEGASPARAGINASE [Suspect]
     Active Substance: PEGASPARGASE
     Indication: RECURRENT CANCER
     Route: 042
     Dates: start: 20210414
  13. AYGESTIN [Concomitant]
     Active Substance: NORETHINDRONE ACETATE
     Indication: MENSTRUATION IRREGULAR
     Route: 048
     Dates: start: 20210417
  14. PEGASPARAGINASE [Suspect]
     Active Substance: PEGASPARGASE
     Indication: RECURRENT CANCER
  15. LOVENOX [Concomitant]
     Active Substance: ENOXAPARIN SODIUM
     Indication: DEEP VEIN THROMBOSIS
     Route: 058
     Dates: start: 20210415
  16. VINCRISTINE [Suspect]
     Active Substance: VINCRISTINE
     Indication: RECURRENT CANCER
  17. ISAVUCONAZOLE [Concomitant]
     Active Substance: ISAVUCONAZOLE
     Indication: BRONCHOPULMONARY ASPERGILLOSIS

REACTIONS (4)
  - Bacteraemia [Recovered/Resolved]
  - Meningitis [Not Recovered/Not Resolved]
  - Neutrophil count decreased [Not Recovered/Not Resolved]
  - Seizure [Recovered/Resolved]

NARRATIVE: CASE EVENT DATE: 20210504
